FAERS Safety Report 6024039-8 (Version None)
Quarter: 2008Q4

REPORT INFORMATION
  Report Type: 
  Country: None (occurrence: None)
  Receive Date: 20081230
  Receipt Date: 20081222
  Transmission Date: 20090506
  Serious: Yes (Hospitalization)
  Sender: FDA-Public Use
  Company Number: JP-ASTRAZENECA-2008AP09093

PATIENT
  Age: 50 Year
  Sex: Female
  Weight: 53 kg

DRUGS (3)
  1. NOLVADEX [Suspect]
     Indication: BREAST CANCER
     Route: 048
     Dates: start: 20080617
  2. PLAVIX [Concomitant]
     Route: 048
     Dates: start: 20070101
  3. HERCEPTIN [Concomitant]
     Route: 041
     Dates: start: 20080626

REACTIONS (1)
  - CEREBRAL INFARCTION [None]
